FAERS Safety Report 13505901 (Version 2)
Quarter: 2017Q3

REPORT INFORMATION
  Report Type: Report from Study
  Country: US (occurrence: US)
  Receive Date: 20170502
  Receipt Date: 20170705
  Transmission Date: 20171127
  Serious: Yes (Hospitalization, Other)
  Sender: FDA-Public Use
  Company Number: US-GILEAD-2017-0270707

PATIENT
  Age: 5 Year
  Sex: Male
  Weight: 20.4 kg

DRUGS (5)
  1. SINGULAIR [Concomitant]
     Active Substance: MONTELUKAST SODIUM
     Indication: ASTHMA
  2. ZENPEP [Concomitant]
     Active Substance: PANCRELIPASE AMYLASE\PANCRELIPASE LIPASE\PANCRELIPASE PROTEASE
  3. AZTREONAM LYSINE [Suspect]
     Active Substance: AZTREONAM LYSINE
     Indication: CYSTIC FIBROSIS
     Dosage: 75 MG, UNK
     Route: 055
     Dates: start: 20161228, end: 20170407
  4. PULMOZYME [Concomitant]
     Active Substance: DORNASE ALFA
  5. ALBUTEROL                          /00139501/ [Concomitant]
     Active Substance: ALBUTEROL

REACTIONS (3)
  - Off label use [Recovered/Resolved]
  - Cystic fibrosis [Recovered/Resolved]
  - Lung disorder [Recovered/Resolved]

NARRATIVE: CASE EVENT DATE: 20161228
